FAERS Safety Report 9899387 (Version 2)
Quarter: 2014Q2

REPORT INFORMATION
  Report Type: Spontaneous
  Country: US (occurrence: US)
  Receive Date: 20140214
  Receipt Date: 20140421
  Transmission Date: 20141212
  Serious: No
  Sender: FDA-Public Use
  Company Number: US-009507513-1402USA007358

PATIENT
  Age: 60 Year
  Sex: Female
  Weight: 70.3 kg

DRUGS (4)
  1. OXYTROL FOR WOMEN [Suspect]
     Indication: HYPERTONIC BLADDER
     Dosage: UNK, UNKNOWN
     Route: 062
     Dates: start: 201401, end: 201402
  2. LEVOTHYROXINE SODIUM [Concomitant]
     Indication: HYPOTHYROIDISM
     Dosage: UNK, UNKNOWN
  3. LISINOPRIL [Concomitant]
     Indication: HYPERTENSION
     Dosage: UNK, UNKNOWN
  4. PREMPRO [Concomitant]
     Indication: MENOPAUSE
     Dosage: UNK, UNKNOWN

REACTIONS (4)
  - Papule [Not Recovered/Not Resolved]
  - Skin warm [Not Recovered/Not Resolved]
  - Rash erythematous [Recovered/Resolved]
  - Erythema [Recovered/Resolved]
